FAERS Safety Report 6748084-X (Version None)
Quarter: 2010Q2

REPORT INFORMATION
  Report Type: 
  Country: None (occurrence: None)
  Receive Date: 20100531
  Receipt Date: 20100517
  Transmission Date: 20101027
  Serious: Yes (Other)
  Sender: FDA-Public Use
  Company Number: IT-RANBAXY-2010RR-33972

PATIENT
  Sex: Female

DRUGS (1)
  1. PARACETAMOL [Suspect]

REACTIONS (2)
  - LIP OEDEMA [None]
  - URTICARIA [None]
